FAERS Safety Report 12450136 (Version 1)
Quarter: 2016Q2

REPORT INFORMATION
  Report Type: Spontaneous
  Country: US (occurrence: US)
  Receive Date: 20160609
  Receipt Date: 20160609
  Transmission Date: 20160815
  Serious: No
  Sender: FDA-Public Use
  Company Number: US-GLENMARK PHARMACEUTICALS INC, USA.-2016GMK022617

PATIENT

DRUGS (1)
  1. NORETHINDRONE. [Suspect]
     Active Substance: NORETHINDRONE
     Indication: PRODUCT USED FOR UNKNOWN INDICATION
     Dosage: 0.35 MG, UNK
     Route: 063
     Dates: start: 201603

REACTIONS (5)
  - Ear infection [Unknown]
  - Faeces discoloured [Unknown]
  - Exposure during breast feeding [Unknown]
  - Diarrhoea [Unknown]
  - Influenza [Unknown]
